FAERS Safety Report 8138513-1 (Version None)
Quarter: 2012Q1

REPORT INFORMATION
  Report Type: 
  Country: None (occurrence: None)
  Receive Date: 20120213
  Receipt Date: 20120201
  Transmission Date: 20120608
  Serious: Yes (Other)
  Sender: FDA-Public Use
  Company Number: 1000026337

PATIENT
  Age: 72 Year
  Sex: Female

DRUGS (4)
  1. ESCITALOPRAM OXALATE [Suspect]
     Dosage: 10 MG (10 MG, 1 IN 1 D),ORAL
     Route: 048
     Dates: start: 20111116, end: 20111130
  2. PIASCLEDINE (PIASCLEDINE /01305801/) (TABLETS) (PIASCLEDINE /01305801/ [Concomitant]
  3. LEXOMIL (BROMAZEPAM) (TABLETS) (BROMAZEPAM) [Concomitant]
  4. TOPALGIC (TRAMADOL HYDROCHLORIDE) (TABLETS) (TRAMADOL HYROCHLORIDE) [Concomitant]

REACTIONS (5)
  - OEDEMA PERIPHERAL [None]
  - GASTROINTESTINAL HAEMORRHAGE [None]
  - ARTHRALGIA [None]
  - TORTICOLLIS [None]
  - MUSCLE CONTRACTURE [None]
